FAERS Safety Report 6701786-3 (Version None)
Quarter: 2010Q2

REPORT INFORMATION
  Report Type: 
  Country: None (occurrence: None)
  Receive Date: 20100429
  Receipt Date: 20100426
  Transmission Date: 20101027
  Serious: Yes (Death, Hospitalization, Other)
  Sender: FDA-Public Use
  Company Number: PHHY2010FR25356

PATIENT
  Age: 89 Year
  Sex: Female

DRUGS (6)
  1. EXELON [Suspect]
     Indication: DEMENTIA ALZHEIMER'S TYPE
     Dosage: 4.6 MG, QD
     Route: 062
  2. EXELON [Suspect]
     Dosage: 9.5 MG, QD
     Route: 062
     Dates: start: 20091118, end: 20091206
  3. RISPERDAL [Concomitant]
  4. LEVOTHYROX [Concomitant]
     Dosage: 75 UG
  5. PLAVIX [Concomitant]
  6. ATHYMIL [Concomitant]

REACTIONS (6)
  - BLOOD PRESSURE SYSTOLIC INCREASED [None]
  - DEATH [None]
  - DIZZINESS [None]
  - FALL [None]
  - FEMORAL NECK FRACTURE [None]
  - LIMB DEFORMITY [None]
